FAERS Safety Report 25048353 (Version 3)
Quarter: 2025Q1

REPORT INFORMATION
  Report Type: Report from Study
  Country: US (occurrence: US)
  Receive Date: 20250307
  Receipt Date: 20250320
  Transmission Date: 20250408
  Serious: Yes (Other)
  Sender: ABBVIE
  Company Number: US-ABBVIE-6160336

PATIENT
  Age: 74 Year
  Sex: Male

DRUGS (2)
  1. RINVOQ [Suspect]
     Active Substance: UPADACITINIB
     Indication: Rheumatoid arthritis
     Route: 048
     Dates: start: 20200117
  2. LEFLUNOMIDE [Suspect]
     Active Substance: LEFLUNOMIDE
     Indication: Arthritis
     Route: 065

REACTIONS (7)
  - Pleural effusion [Not Recovered/Not Resolved]
  - Arthritis [Recovered/Resolved]
  - Somnolence [Not Recovered/Not Resolved]
  - Cardiac discomfort [Not Recovered/Not Resolved]
  - Rales [Not Recovered/Not Resolved]
  - Dyspnoea [Unknown]
  - Cardiac dysfunction [Unknown]

NARRATIVE: CASE EVENT DATE: 20241001
